FAERS Safety Report 4314154-9 (Version None)
Quarter: 2004Q1

REPORT INFORMATION
  Report Type: 
  Country: None (occurrence: None)
  Receive Date: 20040309
  Receipt Date: 20040126
  Transmission Date: 20041129
  Serious: Yes (Hospitalization)
  Sender: FDA-Public Use
  Company Number: 200411086GDDC

PATIENT
  Age: 74 Year
  Sex: Male

DRUGS (4)
  1. MINIRIN [Suspect]
     Indication: SLEEP PHASE RHYTHM DISTURBANCE
     Route: 045
     Dates: start: 20031101, end: 20031101
  2. LOSARTAN [Concomitant]
     Indication: HYPERTENSION
     Route: 048
  3. BENDROFLUAZIDE [Concomitant]
     Indication: HYPERTENSION
     Route: 048
  4. DRUG USED IN DIABETES [Concomitant]
     Indication: DIABETES MELLITUS
     Route: 048

REACTIONS (4)
  - AGITATION [None]
  - CONFUSIONAL STATE [None]
  - HYPONATRAEMIA [None]
  - INCOHERENT [None]
